FAERS Safety Report 10697365 (Version 1)
Quarter: 2015Q1

REPORT INFORMATION
  Report Type: Spontaneous
  Country: US (occurrence: None)
  Receive Date: 20150107
  Receipt Date: 20150107
  Transmission Date: 20150721
  Serious: Yes (Other)
  Sender: FDA-Public Use
  Company Number: None

PATIENT
  Age: 60 Year
  Sex: Female

DRUGS (1)
  1. HARVONI [Suspect]
     Active Substance: LEDIPASVIR\SOFOSBUVIR
     Indication: CHRONIC HEPATITIS C
     Dosage: 1 TABLET DAILY PO
     Route: 048
     Dates: start: 20141211

REACTIONS (3)
  - Dyspnoea [None]
  - Muscular weakness [None]
  - Swelling face [None]

NARRATIVE: CASE EVENT DATE: 20141226
